FAERS Safety Report 24768789 (Version 1)
Quarter: 2024Q4

REPORT INFORMATION
  Report Type: Spontaneous
  Country: US (occurrence: US)
  Receive Date: 20241224
  Receipt Date: 20241224
  Transmission Date: 20250115
  Serious: No
  Sender: CHIESI
  Company Number: US-CHIESI-2024CHF00742

PATIENT
  Sex: Male

DRUGS (1)
  1. CUROSURF [Suspect]
     Active Substance: PORACTANT ALFA
     Indication: Respiratory distress
     Dosage: 3.0 MILLILITER
     Route: 007
     Dates: start: 20240208, end: 20240208

REACTIONS (3)
  - Off label use [Recovered/Resolved]
  - Product availability issue [Not Recovered/Not Resolved]
  - No adverse event [Recovered/Resolved]

NARRATIVE: CASE EVENT DATE: 20240208
